FAERS Safety Report 20069518 (Version 2)
Quarter: 2021Q4

REPORT INFORMATION
  Report Type: Spontaneous
  Country: GB (occurrence: GB)
  Receive Date: 20211115
  Receipt Date: 20211202
  Transmission Date: 20220303
  Serious: Yes (Other)
  Sender: FDA-Public Use
  Company Number: None

PATIENT
  Age: 73 Year
  Sex: Female
  Weight: 67 kg

DRUGS (9)
  1. RAMIPRIL [Suspect]
     Active Substance: RAMIPRIL
     Indication: Product used for unknown indication
     Dosage: 2.5 MILLIGRAM, QD
     Dates: start: 20210127, end: 20211026
  2. LISINOPRIL [Suspect]
     Active Substance: LISINOPRIL
     Indication: Product used for unknown indication
     Dosage: 5 MILLIGRAM
     Dates: start: 20211104
  3. BETAMETHASONE VALERATE [Concomitant]
     Active Substance: BETAMETHASONE VALERATE
     Dosage: 1 DOSAGE FORM, BID, APPLY
     Dates: start: 20200611
  4. BISOPROLOL [Concomitant]
     Active Substance: BISOPROLOL
     Dosage: 1 DOSAGE FORM, QD
     Dates: start: 20200611
  5. DERMOL                             /01330701/ [Concomitant]
     Indication: Dry skin
     Dosage: APPLY TO DRY SKIN FREQUENTLY TO MOISTURISE
     Dates: start: 20211104
  6. FEXOFENADINE [Concomitant]
     Active Substance: FEXOFENADINE HYDROCHLORIDE
     Indication: Allergy prophylaxis
     Dosage: 1 DOSAGE FORM, QD (TO SUPPRESS ALLERGIC SYMPTOMS)
     Dates: start: 20211104
  7. IMIGRAN                            /01044802/ [Concomitant]
     Dosage: 1 DOSAGE FORM (AS DIRECTED)
     Dates: start: 20200611
  8. LOSARTAN [Concomitant]
     Active Substance: LOSARTAN
     Dosage: 1 DOSAGE FORM, QD (THIS IS TO REPLACE RAMIPRIL)
     Dates: start: 20211026
  9. RIVAROXABAN [Concomitant]
     Active Substance: RIVAROXABAN
     Dosage: 1 DOSAGE FORM, QD (WITH FOOD)
     Dates: start: 20200611

REACTIONS (1)
  - Rash pruritic [Recovered/Resolved]

NARRATIVE: CASE EVENT DATE: 20211104
